FAERS Safety Report 11257927 (Version 4)
Quarter: 2015Q3

REPORT INFORMATION
  Report Type: Spontaneous
  Country: BR (occurrence: BR)
  Receive Date: 20150710
  Receipt Date: 20150908
  Transmission Date: 20151125
  Serious: Yes (Life-Threatening, Hospitalization, Other)
  Sender: FDA-Public Use
  Company Number: BR-ASTRAZENECA-2015SE65521

PATIENT
  Age: 74 Year
  Sex: Female
  Weight: 70 kg

DRUGS (14)
  1. NEXIUM [Suspect]
     Active Substance: ESOMEPRAZOLE MAGNESIUM
     Indication: GASTRITIS
     Route: 048
     Dates: start: 2013
  2. KOMBIGLYZE XR [Suspect]
     Active Substance: METFORMIN HYDROCHLORIDE\SAXAGLIPTIN HYDROCHLORIDE
     Indication: TYPE 2 DIABETES MELLITUS
     Dosage: 5/1000 MG DAILY
     Route: 048
     Dates: start: 2012
  3. ATENSINA [Concomitant]
     Active Substance: CLONIDINE
  4. ASTRO [Concomitant]
  5. INDAPEN SR [Concomitant]
     Active Substance: INDAPAMIDE
  6. ASPIRINA PREVENT [Concomitant]
     Active Substance: ASPIRIN
  7. RETEMIC [Concomitant]
     Active Substance: OXYBUTYNIN
     Dosage: 1/2 TABLET
  8. PREDSIN [Concomitant]
  9. CLOPIDOGREL [Concomitant]
     Active Substance: CLOPIDOGREL BISULFATE
  10. LIPLESS [Concomitant]
     Active Substance: CIPROFIBRATE
  11. DIOVAN HCT [Suspect]
     Active Substance: HYDROCHLOROTHIAZIDE\VALSARTAN
     Indication: BLOOD PRESSURE ABNORMAL
     Dosage: DAILY
     Route: 065
  12. MACRODANTIN [Concomitant]
     Active Substance: NITROFURANTOIN
  13. RISPERDAL [Concomitant]
     Active Substance: RISPERIDONE
     Dosage: THREE TIMES A DAY
  14. RANITIDINE [Concomitant]
     Active Substance: RANITIDINE\RANITIDINE HYDROCHLORIDE
     Dosage: TWO TIMES A DAY

REACTIONS (9)
  - Memory impairment [Not Recovered/Not Resolved]
  - Weight increased [Unknown]
  - Influenza [Not Recovered/Not Resolved]
  - Weight decreased [Recovered/Resolved]
  - Hyperkeratosis [Recovering/Resolving]
  - Dyskinesia [Not Recovered/Not Resolved]
  - Blood glucose increased [Recovering/Resolving]
  - Bone disorder [Recovered/Resolved]
  - Gastritis [Recovered/Resolved]

NARRATIVE: CASE EVENT DATE: 2010
